FAERS Safety Report 17432330 (Version 1)
Quarter: 2020Q1

REPORT INFORMATION
  Report Type: Spontaneous
  Country: US (occurrence: US)
  Receive Date: 20200218
  Receipt Date: 20200218
  Transmission Date: 20200409
  Serious: No
  Sender: FDA-Public Use
  Company Number: US-SA-2020SA040401

PATIENT
  Sex: Male

DRUGS (1)
  1. NASACORT [Suspect]
     Active Substance: TRIAMCINOLONE ACETONIDE
     Indication: GLAUCOMA

REACTIONS (2)
  - Contraindicated product administered [Unknown]
  - Product use in unapproved indication [Unknown]
